FAERS Safety Report 7337855-7 (Version None)
Quarter: 2011Q1

REPORT INFORMATION
  Report Type: 
  Country: None (occurrence: None)
  Receive Date: 20110308
  Receipt Date: 20110227
  Transmission Date: 20110831
  Serious: Yes (Hospitalization, Other)
  Sender: FDA-Public Use
  Company Number: IT-MPIJNJ-2011-00035

PATIENT

DRUGS (1)
  1. VELCADE [Suspect]
     Indication: MULTIPLE MYELOMA
     Dosage: 2.27 MG, UNK
     Route: 042
     Dates: start: 20100329, end: 20101118

REACTIONS (4)
  - RENAL FAILURE ACUTE [None]
  - DIVERTICULITIS [None]
  - SEPSIS [None]
  - CARDIAC FAILURE [None]
